FAERS Safety Report 9037226 (Version 1)
Quarter: 2013Q1

REPORT INFORMATION
  Report Type: Report from Study
  Country: US (occurrence: US)
  Receive Date: 20130129
  Receipt Date: 20130129
  Transmission Date: 20140127
  Serious: No
  Sender: FDA-Public Use
  Company Number: US-ABBOTT-12P-163-0892364-00

PATIENT
  Age: 65 Year
  Sex: Male

DRUGS (30)
  1. HUMIRA 40 MG/0.8 ML PEN [Suspect]
     Indication: CROHN^S DISEASE
     Dates: start: 20120102
  2. HUMIRA 40 MG/0.8 ML PEN [Suspect]
     Dosage: 80 MG 2ND LOADING DOSE
     Dates: start: 20120102
  3. RATAFLO [Concomitant]
     Indication: URINARY TRACT DISORDER
     Dosage: IN AM
  4. CIALIS [Concomitant]
     Indication: ERECTILE DYSFUNCTION
     Dosage: IN AM
  5. PLAVIX [Concomitant]
     Indication: THROMBOSIS PROPHYLAXIS
  6. BUSPIRONE [Concomitant]
     Indication: ANXIETY
  7. EFFEXAR XL [Concomitant]
     Indication: ANXIETY
  8. EFFEXAR XL [Concomitant]
     Indication: DEPRESSION
  9. HYOSCYAMINE [Concomitant]
     Indication: ABDOMINAL PAIN
  10. ALIGN [Concomitant]
     Indication: DIARRHOEA
     Dosage: IN AM
  11. FLAGYL [Concomitant]
     Indication: FLATULENCE
  12. TIZANINDINE [Concomitant]
     Indication: RESTLESS LEGS SYNDROME
     Dosage: AT HOUR OF SLEEP
  13. MIRAPEX [Concomitant]
     Indication: MIGRAINE
     Dosage: 9 PILLS DAILY
  14. NEURONTIN [Concomitant]
     Indication: MIGRAINE
  15. LYRICA [Concomitant]
     Indication: MUSCLE SPASMS
  16. NITROGLYCERIN [Concomitant]
     Indication: CHEST PAIN
  17. PROVIGIL [Concomitant]
     Indication: DRUG THERAPY
  18. ALLEGRA [Concomitant]
     Indication: NASAL CONGESTION
  19. FLUTICASONE [Concomitant]
     Indication: NASAL CONGESTION
     Dosage: 6 SPRAYS DAILY AS NEEDED
  20. BUDESONIDE EC [Concomitant]
     Indication: LIVER DISORDER
  21. ASA [Concomitant]
     Indication: CARDIOVASCULAR EVENT PROPHYLAXIS
  22. ETODOLAC ER [Concomitant]
     Indication: ARTHRITIS
  23. LIPITOR [Concomitant]
     Indication: BLOOD CHOLESTEROL INCREASED
     Dosage: AT HOUR OF SLEEP
  24. QUINAPRIL HCTZ [Concomitant]
     Indication: HYPERTENSION
     Dosage: 20/25 MG BID
  25. RANITIDINE [Concomitant]
     Indication: GASTROOESOPHAGEAL REFLUX DISEASE
     Dosage: AT HOUR OF SLEEP
  26. RANITIDINE [Concomitant]
     Indication: ABDOMINAL DISTENSION
  27. MV [Concomitant]
     Indication: PRODUCT USED FOR UNKNOWN INDICATION
     Dosage: DAILY
  28. B COMPLEX WITH FOLIC ACID [Concomitant]
     Indication: PRODUCT USED FOR UNKNOWN INDICATION
     Dosage: 1 IN AM
  29. VIT E [Concomitant]
     Indication: HEPATIC STEATOSIS
     Dosage: 1 IN AM
  30. ANTIDIARRHEA [Concomitant]
     Indication: DIARRHOEA

REACTIONS (4)
  - Abdominal pain [Not Recovered/Not Resolved]
  - Abdominal distension [Not Recovered/Not Resolved]
  - Injection site pain [Unknown]
  - Decreased appetite [Unknown]
